FAERS Safety Report 7122486-4 (Version None)
Quarter: 2010Q4

REPORT INFORMATION
  Report Type: 
  Country: None (occurrence: None)
  Receive Date: 20101124
  Receipt Date: 20101109
  Transmission Date: 20110411
  Serious: Yes (Hospitalization, Other)
  Sender: FDA-Public Use
  Company Number: PHHO2010US13825

PATIENT
  Sex: Female
  Weight: 50.34 kg

DRUGS (5)
  1. BLINDED NO TREATMENT RECEIVED NOMED [Suspect]
     Indication: PULMONARY ARTERIAL HYPERTENSION
     Dosage: BLINDED
     Route: 048
     Dates: start: 20100722, end: 20100904
  2. BLINDED STI571/CGP57148B T35717+TAB [Suspect]
     Indication: PULMONARY ARTERIAL HYPERTENSION
     Dosage: BLINDED
     Route: 048
     Dates: start: 20100722, end: 20100904
  3. DILTIAZEM [Concomitant]
     Indication: ATRIAL FLUTTER
  4. OXYGEN [Concomitant]
     Indication: HAEMATOMA
  5. DIGOXIN [Concomitant]
     Indication: ATRIAL FLUTTER

REACTIONS (5)
  - ATELECTASIS [None]
  - DYSPNOEA [None]
  - FATIGUE [None]
  - PLEURAL EFFUSION [None]
  - PNEUMOTHORAX [None]
